FAERS Safety Report 24092174 (Version 1)
Quarter: 2024Q3

REPORT INFORMATION
  Report Type: Spontaneous
  Country: US (occurrence: US)
  Receive Date: 20240715
  Receipt Date: 20240715
  Transmission Date: 20241016
  Serious: Yes (Hospitalization)
  Sender: SANOFI AVENTIS
  Company Number: US-SA-SAC20240620001149

PATIENT
  Age: 9 Year
  Sex: Male

DRUGS (3)
  1. ELOCTATE [Suspect]
     Active Substance: EFMOROCTOCOG ALFA
     Indication: Factor VIII deficiency
     Dosage: 1500 U, DAILY AS NEEDED
     Route: 042
     Dates: start: 201509
  2. ELOCTATE [Suspect]
     Active Substance: EFMOROCTOCOG ALFA
     Indication: Factor VIII deficiency
     Dosage: 1500 U, DAILY AS NEEDED
     Route: 042
     Dates: start: 201509
  3. HEMLIBRA [Concomitant]
     Active Substance: EMICIZUMAB-KXWH
     Indication: Prophylaxis
     Dosage: UNK

REACTIONS (4)
  - Hospitalisation [Unknown]
  - Gingival bleeding [Unknown]
  - Tooth avulsion [Unknown]
  - Weight increased [Unknown]

NARRATIVE: CASE EVENT DATE: 20240528
